FAERS Safety Report 6107929-7 (Version None)
Quarter: 2009Q1

REPORT INFORMATION
  Report Type: 
  Country: None (occurrence: None)
  Receive Date: 20090304
  Receipt Date: 20080318
  Transmission Date: 20090719
  Serious: Yes (Other)
  Sender: FDA-Public Use
  Company Number: DSA_65080_2008

PATIENT
  Sex: Female

DRUGS (3)
  1. NAPRELAN [Suspect]
     Indication: INFLAMMATION
     Dosage: (ORAL)
     Route: 048
     Dates: start: 20080131, end: 20080218
  2. DIAZIDE /00413701/ [Concomitant]
  3. SYNTHROID [Concomitant]

REACTIONS (4)
  - DYSPNOEA [None]
  - LIP SWELLING [None]
  - OEDEMA PERIPHERAL [None]
  - RASH [None]
